FAERS Safety Report 19138446 (Version 1)
Quarter: 2021Q2

REPORT INFORMATION
  Report Type: Report from Study
  Country: MX (occurrence: MX)
  Receive Date: 20210415
  Receipt Date: 20210415
  Transmission Date: 20210717
  Serious: Yes (Other)
  Sender: FDA-Public Use
  Company Number: MX-JNJFOC-20210418134

PATIENT
  Age: 59 Year
  Sex: Female
  Weight: 53.2 kg

DRUGS (3)
  1. XGEVA [Concomitant]
     Active Substance: DENOSUMAB
  2. FILGRASTIM [Concomitant]
     Active Substance: FILGRASTIM
     Indication: NEUTROPENIA
  3. DARATUMUMAB [Suspect]
     Active Substance: DARATUMUMAB
     Indication: PLASMA CELL MYELOMA
     Route: 042
     Dates: start: 20200211

REACTIONS (4)
  - Transplant [Unknown]
  - Pneumonia [Unknown]
  - Plasma cell myeloma [Unknown]
  - Cytomegalovirus gastrointestinal infection [Recovering/Resolving]

NARRATIVE: CASE EVENT DATE: 202010
